FAERS Safety Report 5661370-X (Version None)
Quarter: 2008Q1

REPORT INFORMATION
  Report Type: 
  Country: None (occurrence: None)
  Receive Date: 20080312
  Receipt Date: 20080229
  Transmission Date: 20080703
  Serious: Yes (Death, Congenital Anomaly)
  Sender: FDA-Public Use
  Company Number: US-JNJFOC-20080300761

PATIENT
  Sex: Male
  Weight: 2.77 kg

DRUGS (6)
  1. DITROPAN [Suspect]
     Indication: DRUG EXPOSURE DURING PREGNANCY
  2. REBIF [Suspect]
     Indication: DRUG EXPOSURE DURING PREGNANCY
  3. NEURONTIN [Suspect]
     Indication: DRUG EXPOSURE DURING PREGNANCY
  4. PROVIGIL [Suspect]
     Indication: DRUG EXPOSURE DURING PREGNANCY
  5. CRESTOR [Suspect]
     Indication: DRUG EXPOSURE DURING PREGNANCY
  6. GLUCOVANCE [Suspect]
     Indication: DRUG EXPOSURE DURING PREGNANCY

REACTIONS (7)
  - CONGENITAL MUSCULOSKELETAL ANOMALY [None]
  - DEATH [None]
  - LIMB MALFORMATION [None]
  - PULMONARY MALFORMATION [None]
  - RIB HYPOPLASIA [None]
  - SPINE MALFORMATION [None]
  - TALIPES [None]
